FAERS Safety Report 8314456-5 (Version None)
Quarter: 2012Q2

REPORT INFORMATION
  Report Type: 
  Country: None (occurrence: None)
  Receive Date: 20120426
  Receipt Date: 20120420
  Transmission Date: 20120825
  Serious: Yes (Death, Other)
  Sender: FDA-Public Use
  Company Number: JP-PFIZER INC-2012091710

PATIENT
  Age: 41 Year
  Sex: Male

DRUGS (6)
  1. CLONAZEPAM [Suspect]
     Dosage: 3 MG, DAILY
     Route: 048
  2. TOLEDOMIN [Suspect]
     Indication: DEPRESSION
     Dosage: 75 MG, DAILY
     Route: 048
  3. PROMAZINE HYDROCHLORIDE [Suspect]
     Dosage: 100 MG, DAILY
     Route: 048
  4. ABILIT [Suspect]
     Dosage: 200 MG, DAILY
     Route: 048
  5. LEXIN [Suspect]
     Dosage: 300 MG, DAILY
     Route: 048
  6. HALCION [Suspect]
     Indication: SLEEP DISORDER
     Dosage: 0.5 MG, DAILY
     Route: 048

REACTIONS (1)
  - COMPLETED SUICIDE [None]
